FAERS Safety Report 17791219 (Version 1)
Quarter: 2020Q2

REPORT INFORMATION
  Report Type: Spontaneous
  Country: US (occurrence: US)
  Receive Date: 20200514
  Receipt Date: 20200514
  Transmission Date: 20200714
  Serious: Yes (Hospitalization)
  Sender: FDA-Public Use
  Company Number: None

PATIENT
  Age: 63 Year
  Sex: Male
  Weight: 78 kg

DRUGS (1)
  1. HYDROMORPHONE (HYDROMORPHONE 1MG/ML INJ  SOLN, PCA ,30ML [Suspect]
     Active Substance: HYDROMORPHONE
     Indication: PAIN
     Dosage: ?          OTHER FREQUENCY:OTHER;?
     Route: 042
     Dates: start: 20200214, end: 20200216

REACTIONS (1)
  - Angioedema [None]

NARRATIVE: CASE EVENT DATE: 20200204
